FAERS Safety Report 7902417-7 (Version None)
Quarter: 2011Q4

REPORT INFORMATION
  Report Type: 
  Country: None (occurrence: None)
  Receive Date: 20111108
  Receipt Date: 20111105
  Transmission Date: 20120403
  Serious: Yes (Death)
  Sender: FDA-Public Use
  Company Number: HU-ABBOTT-11P-076-0871453-00

PATIENT
  Age: 76 Year
  Sex: Female
  Weight: 87 kg

DRUGS (1)
  1. ZEMPLAR [Suspect]
     Indication: RENAL FAILURE CHRONIC
     Dosage: 7.25MCG/DIALYSIS 3 TIMES WEEKLY
     Route: 042
     Dates: start: 20110402

REACTIONS (2)
  - CEREBRAL ARTERIOSCLEROSIS [None]
  - ISCHAEMIC STROKE [None]
